FAERS Safety Report 12958865 (Version 1)
Quarter: 2016Q4

REPORT INFORMATION
  Report Type: Spontaneous
  Country: US (occurrence: US)
  Receive Date: 20161117
  Receipt Date: 20161117
  Transmission Date: 20170207
  Serious: No
  Sender: FDA-Public Use
  Company Number: None

PATIENT
  Age: 65 Year
  Sex: Male

DRUGS (26)
  1. FERROUS SULFATE. [Concomitant]
     Active Substance: FERROUS SULFATE
  2. TRAZODONE [Concomitant]
     Active Substance: TRAZODONE HYDROCHLORIDE
  3. ZINC OXIDE. [Concomitant]
     Active Substance: ZINC OXIDE
  4. ACETAMINOPHEN. [Concomitant]
     Active Substance: ACETAMINOPHEN
  5. ALLOPURINOL. [Concomitant]
     Active Substance: ALLOPURINOL
  6. DOCUSATE [Concomitant]
     Active Substance: DOCUSATE
  7. FLUTICASONE [Concomitant]
     Active Substance: FLUTICASONE\FLUTICASONE PROPIONATE
  8. FUROSEMIDE. [Concomitant]
     Active Substance: FUROSEMIDE
  9. OMEPRAZOLE. [Concomitant]
     Active Substance: OMEPRAZOLE
  10. VITAMIN D [Concomitant]
     Active Substance: CHOLECALCIFEROL
  11. LACTULOSE. [Concomitant]
     Active Substance: LACTULOSE
  12. MUPIROCIN. [Concomitant]
     Active Substance: MUPIROCIN
  13. OXYCODONE [Concomitant]
     Active Substance: OXYCODONE
  14. DORZOLAMIDE [Concomitant]
     Active Substance: DORZOLAMIDE
  15. TAMSULOSIN [Concomitant]
     Active Substance: TAMSULOSIN
  16. TRIAMCINOLONE CREAM [Concomitant]
     Active Substance: TRIAMCINOLONE
  17. LISINOPRIL. [Suspect]
     Active Substance: LISINOPRIL
     Indication: HYPERTENSION
     Route: 048
     Dates: end: 20161001
  18. ASPIRIN. [Concomitant]
     Active Substance: ASPIRIN
  19. LORATADINE. [Concomitant]
     Active Substance: LORATADINE
  20. ATORVASTATIN [Concomitant]
     Active Substance: ATORVASTATIN
  21. DIPHENHYDRAMINE. [Concomitant]
     Active Substance: DIPHENHYDRAMINE
  22. LIDOCAINE. [Concomitant]
     Active Substance: LIDOCAINE
  23. LATANOPROST. [Concomitant]
     Active Substance: LATANOPROST
  24. METOPROLOL SUCCINATE. [Concomitant]
     Active Substance: METOPROLOL SUCCINATE
  25. MONTELUKAST [Concomitant]
     Active Substance: MONTELUKAST SODIUM
  26. CEFUROXIME. [Concomitant]
     Active Substance: CEFUROXIME

REACTIONS (4)
  - Melaena [None]
  - Haematochezia [None]
  - Electrocardiogram T wave abnormal [None]
  - Hyperkalaemia [None]

NARRATIVE: CASE EVENT DATE: 20161001
